FAERS Safety Report 18147353 (Version 1)
Quarter: 2020Q3

REPORT INFORMATION
  Report Type: Report from Study
  Country: US (occurrence: US)
  Receive Date: 20200813
  Receipt Date: 20200813
  Transmission Date: 20201103
  Serious: Yes (Hospitalization)
  Sender: FDA-Public Use
  Company Number: US-KARYOPHARM-2020KPT000884

PATIENT
  Age: 63 Year
  Sex: Female

DRUGS (3)
  1. SELINEXOR [Suspect]
     Active Substance: SELINEXOR
     Indication: OVARIAN CANCER
     Dosage: 60 MG, 2X/WEEK, ORAL, 2 WEEKS OFF AND 1 WEEK ON
     Route: 048
     Dates: start: 20200715
  2. PACLITAXEL. [Suspect]
     Active Substance: PACLITAXEL
     Indication: OVARIAN CANCER
     Dosage: 80 MG/M2, WEEKLY, INTRAVENOUS
     Route: 042
     Dates: start: 20200715
  3. SELINEXOR [Suspect]
     Active Substance: SELINEXOR
     Dosage: 40 MG,2X/WEEK, ORAL, 2 WEEKS OFF AND 1 WEEK ON
     Route: 048

REACTIONS (2)
  - Vomiting [Not Recovered/Not Resolved]
  - Nausea [Not Recovered/Not Resolved]

NARRATIVE: CASE EVENT DATE: 20200803
